FAERS Safety Report 7363261-5 (Version None)
Quarter: 2011Q1

REPORT INFORMATION
  Report Type: 
  Country: None (occurrence: None)
  Receive Date: 20110321
  Receipt Date: 20110308
  Transmission Date: 20110831
  Serious: Yes (Hospitalization, Other)
  Sender: FDA-Public Use
  Company Number: US-JNJFOC-20100201087

PATIENT
  Sex: Male
  Weight: 43.6 kg

DRUGS (4)
  1. REMICADE [Suspect]
     Indication: INFLAMMATORY BOWEL DISEASE
     Route: 042
  2. METRONIDAZOLE [Concomitant]
  3. PREDNISONE [Concomitant]
  4. REMICADE [Suspect]
     Dosage: 2ND DOSE
     Route: 042

REACTIONS (2)
  - COLITIS [None]
  - DRUG INEFFECTIVE [None]
